FAERS Safety Report 5032535-5 (Version None)
Quarter: 2006Q2

REPORT INFORMATION
  Report Type: 
  Country: None (occurrence: None)
  Receive Date: 20060515
  Receipt Date: 20060120
  Transmission Date: 20061013
  Serious: No
  Sender: FDA-Public Use
  Company Number: S06-USA-00249-01

PATIENT
  Age: 94 Year
  Sex: Female

DRUGS (8)
  1. NAMENDA [Suspect]
     Indication: AMNESIA
     Dosage: 5 MG BID PO
     Route: 048
     Dates: start: 20060116
  2. NAMENDA [Suspect]
     Indication: AMNESIA
     Dosage: 5 MG QD PO
     Route: 048
     Dates: start: 20060109, end: 20060115
  3. ARICEPT [Concomitant]
  4. DIGOXIN [Concomitant]
  5. COUMADIN [Concomitant]
  6. SYNTHROID [Concomitant]
  7. ASPIRIN [Concomitant]
  8. ACTONEL [Concomitant]

REACTIONS (2)
  - DIZZINESS [None]
  - HEADACHE [None]
